FAERS Safety Report 11693288 (Version 1)
Quarter: 2015Q4

REPORT INFORMATION
  Report Type: Spontaneous
  Country: US (occurrence: None)
  Receive Date: 20151102
  Receipt Date: 20151102
  Transmission Date: 20160304
  Serious: Yes (Disabling, Other)
  Sender: FDA-Public Use
  Company Number: None

PATIENT
  Age: 53 Year
  Sex: Female
  Weight: 67.13 kg

DRUGS (6)
  1. CIPRO [Suspect]
     Active Substance: CIPROFLOXACIN HYDROCHLORIDE
     Indication: BRONCHITIS
     Dosage: PILLS
     Dates: start: 2013
  2. SYNTHROID [Concomitant]
     Active Substance: LEVOTHYROXINE SODIUM
  3. IBUPROFEN. [Concomitant]
     Active Substance: IBUPROFEN
  4. LEVOFLOXACIN. [Suspect]
     Active Substance: LEVOFLOXACIN
     Indication: MASTOIDITIS
     Route: 042
     Dates: start: 20150921, end: 20150921
  5. LEVOFLOXACIN. [Suspect]
     Active Substance: LEVOFLOXACIN
     Indication: BRONCHITIS
     Route: 042
     Dates: start: 20150921, end: 20150921
  6. CIPRO [Suspect]
     Active Substance: CIPROFLOXACIN HYDROCHLORIDE
     Indication: MASTOIDITIS
     Dosage: PILLS
     Dates: start: 2013

REACTIONS (16)
  - Tendon disorder [None]
  - Arthropathy [None]
  - Nervous system disorder [None]
  - Rash [None]
  - Muscular weakness [None]
  - Large intestinal haemorrhage [None]
  - Atelectasis [None]
  - Visual impairment [None]
  - Toxicity to various agents [None]
  - Renal impairment [None]
  - Neuropathy peripheral [None]
  - Hepatic function abnormal [None]
  - Burning sensation [None]
  - Gastrointestinal disorder [None]
  - Photosensitivity reaction [None]
  - Arthralgia [None]

NARRATIVE: CASE EVENT DATE: 20150921
